FAERS Safety Report 8150121-5 (Version None)
Quarter: 2012Q1

REPORT INFORMATION
  Report Type: 
  Country: None (occurrence: None)
  Receive Date: 20120220
  Receipt Date: 20120208
  Transmission Date: 20120608
  Serious: Yes (Hospitalization)
  Sender: FDA-Public Use
  Company Number: US-BIOGENIDEC-2011BI031620

PATIENT
  Age: 36 Year
  Sex: Female

DRUGS (1)
  1. AVONEX [Suspect]
     Indication: MULTIPLE SCLEROSIS
     Route: 030
     Dates: start: 20100624, end: 20110805

REACTIONS (3)
  - CEREBROVASCULAR ACCIDENT [None]
  - SYSTEMIC LUPUS ERYTHEMATOSUS [None]
  - ECHOCARDIOGRAM ABNORMAL [None]
